FAERS Safety Report 13905809 (Version 1)
Quarter: 2017Q3

REPORT INFORMATION
  Report Type: Spontaneous
  Country: US (occurrence: None)
  Receive Date: 20170821
  Receipt Date: 20170821
  Transmission Date: 20171127
  Serious: Yes (Hospitalization)
  Sender: FDA-Public Use
  Company Number: None

PATIENT
  Age: 33 Year
  Sex: Female
  Weight: 90.9 kg

DRUGS (1)
  1. ETHINYL ESTRADIOL/NORGESTIMATE [Suspect]
     Active Substance: ETHINYL ESTRADIOL\NORGESTIMATE
     Indication: HORMONE REPLACEMENT THERAPY
     Route: 048
     Dates: start: 20140312, end: 20170607

REACTIONS (7)
  - Hypoaesthesia [None]
  - Pneumonia [None]
  - Lung infiltration [None]
  - Atelectasis [None]
  - Muscular weakness [None]
  - Pulmonary embolism [None]
  - Paraesthesia [None]

NARRATIVE: CASE EVENT DATE: 20170606
